FAERS Safety Report 5303659-X (Version None)
Quarter: 2007Q2

REPORT INFORMATION
  Report Type: 
  Country: None (occurrence: None)
  Receive Date: 20070420
  Receipt Date: 20070410
  Transmission Date: 20071010
  Serious: Yes (Death)
  Sender: FDA-Public Use
  Company Number: MW-GILEAD-2006-0010781

PATIENT
  Age: 50 Year
  Sex: Male
  Weight: 48 kg

DRUGS (5)
  1. EMTRICITABINE [Suspect]
     Indication: HIV INFECTION
     Route: 048
     Dates: start: 20061006, end: 20061113
  2. TENOFOVIR DISOPROXIL FUMARATE [Suspect]
     Indication: HIV INFECTION
     Route: 048
     Dates: start: 20061006, end: 20061113
  3. NEVIRAPINE [Suspect]
     Indication: HIV INFECTION
     Route: 048
     Dates: start: 20061103, end: 20061113
  4. NEVIRAPINE [Suspect]
     Route: 048
     Dates: start: 20061020, end: 20061102
  5. FERROUS SULFATE [Concomitant]

REACTIONS (5)
  - ASPARTATE AMINOTRANSFERASE INCREASED [None]
  - CONFUSIONAL STATE [None]
  - PALPITATIONS [None]
  - PSYCHOTIC DISORDER [None]
  - STEVENS-JOHNSON SYNDROME [None]
